FAERS Safety Report 8922766 (Version 1)
Quarter: 2012Q4

REPORT INFORMATION
  Report Type: 
  Country: FR (occurrence: FR)
  Receive Date: 20121125
  Receipt Date: 20121125
  Transmission Date: 20130627
  Serious: Yes (Hospitalization)
  Sender: FDA-Public Use
  Company Number: FR-SANOFI-AVENTIS-2012SA085189

PATIENT
  Age: 49 Year
  Sex: Female

DRUGS (5)
  1. RIFADINE [Suspect]
     Indication: IMPLANT INFECTION
     Route: 042
     Dates: start: 20120913, end: 20120920
  2. DEPAKINE CHRONO [Suspect]
     Indication: EPILEPSY
     Dosage: started for a long time
     Route: 048
  3. CILASTATIN/IMIPENEM [Suspect]
     Indication: IMPLANT INFECTION
     Dosage: 500 mg/500mg powder for solution for perfusion
     Route: 041
     Dates: start: 20120912, end: 20120920
  4. URBANYL [Concomitant]
     Dates: start: 20120920
  5. METHADONE [Concomitant]
     Indication: DRUG DEPENDENCE
     Route: 048

REACTIONS (2)
  - Convulsion [Recovered/Resolved]
  - Drug interaction [Recovered/Resolved]
